FAERS Safety Report 10189717 (Version 1)
Quarter: 2014Q2

REPORT INFORMATION
  Report Type: Spontaneous
  Country: US (occurrence: US)
  Receive Date: 20140522
  Receipt Date: 20140522
  Transmission Date: 20141212
  Serious: Yes (Hospitalization)
  Sender: FDA-Public Use
  Company Number: US-SA-2014SA038077

PATIENT
  Age: 21 Year
  Sex: Male

DRUGS (1)
  1. LANTUS [Suspect]
     Indication: TYPE 1 DIABETES MELLITUS
     Dosage: DOSE:26 UNIT(S)
     Route: 058
     Dates: start: 2007

REACTIONS (6)
  - Angioedema [Unknown]
  - Eye swelling [Unknown]
  - Lip swelling [Unknown]
  - Urticaria [Unknown]
  - Pruritus [Unknown]
  - Antibody test positive [Unknown]
